FAERS Safety Report 6578496-9 (Version None)
Quarter: 2010Q1

REPORT INFORMATION
  Report Type: 
  Country: None (occurrence: None)
  Receive Date: 20100211
  Receipt Date: 20100202
  Transmission Date: 20100710
  Serious: Yes (Hospitalization)
  Sender: FDA-Public Use
  Company Number: PHHY2010FR06429

PATIENT
  Age: 37 Year
  Sex: Male

DRUGS (12)
  1. NEORAL [Suspect]
     Indication: RENAL TRANSPLANT
     Dosage: 60 MG, BID
     Dates: start: 20040101
  2. CELLCEPT [Suspect]
     Dosage: 1 G, BID
     Dates: start: 20040101
  3. TENORMIN [Suspect]
     Dosage: 50 MG DAILY
     Dates: start: 20040101
  4. SOLUPRED [Suspect]
     Dosage: 5 MG DAILY
     Dates: start: 20040101
  5. AMLOR [Suspect]
     Dosage: 5 MG, BID
     Dates: start: 20040101
  6. VASTEN [Suspect]
     Dosage: 20 MG DAILY
     Dates: start: 20040101
  7. MIRCERA [Suspect]
     Dosage: 75 MCG / 0.3ML MONTHLY
     Dates: start: 20040101
  8. APROVEL [Suspect]
     Dosage: 75 MG DAILY
     Dates: start: 20040101
  9. DEDROGYL [Suspect]
     Dosage: UNK
     Dates: start: 20040101
  10. TARDYFERON [Suspect]
  11. NATRIUM BICARBONAT [Suspect]
  12. EZETROL [Suspect]
     Dosage: 10 MG DAILY

REACTIONS (2)
  - HALLUCINATION, AUDITORY [None]
  - MEMORY IMPAIRMENT [None]
